FAERS Safety Report 4846102-7 (Version None)
Quarter: 2005Q4

REPORT INFORMATION
  Report Type: 
  Country: None (occurrence: None)
  Receive Date: 20051130
  Receipt Date: 20051122
  Transmission Date: 20060501
  Serious: Yes (Other)
  Sender: FDA-Public Use
  Company Number: 2005159589

PATIENT
  Sex: Female

DRUGS (4)
  1. NEURONTIN [Suspect]
     Indication: ILL-DEFINED DISORDER
  2. VICODIN [Concomitant]
  3. VITAMIN B (VITAMIN B) [Concomitant]
  4. ZANTAC [Concomitant]

REACTIONS (5)
  - ARTHRITIS [None]
  - HERNIA [None]
  - INTERVERTEBRAL DISC PROTRUSION [None]
  - NASAL DISORDER [None]
  - PAIN [None]
